FAERS Safety Report 10232646 (Version 1)
Quarter: 2014Q2

REPORT INFORMATION
  Report Type: Spontaneous
  Country: SE (occurrence: SE)
  Receive Date: 20140612
  Receipt Date: 20140612
  Transmission Date: 20141212
  Serious: Yes (Hospitalization)
  Sender: FDA-Public Use
  Company Number: SE-PFIZER INC-2014155401

PATIENT
  Age: 62 Year
  Sex: Male

DRUGS (3)
  1. SALAZOPYRIN [Suspect]
     Indication: ARTHRITIS REACTIVE
     Dosage: UNK
     Dates: start: 20140509, end: 20140525
  2. SALAZOPYRIN [Suspect]
     Dosage: DOSE INCREASED
     Dates: start: 20140525, end: 20140527
  3. PREDNISOLONE [Concomitant]
     Indication: ARTHRITIS REACTIVE
     Dosage: UNK

REACTIONS (6)
  - Urticaria [Unknown]
  - Pyrexia [Unknown]
  - Dysphonia [Unknown]
  - Vomiting [Unknown]
  - Alanine aminotransferase increased [Unknown]
  - Thrombocytopenia [Unknown]
